FAERS Safety Report 18247426 (Version 1)
Quarter: 2020Q3

REPORT INFORMATION
  Report Type: Spontaneous
  Country: DE (occurrence: DE)
  Receive Date: 20200909
  Receipt Date: 20200909
  Transmission Date: 20201103
  Serious: Yes (Hospitalization)
  Sender: FDA-Public Use
  Company Number: DE-PFIZER INC-2020345714

PATIENT
  Age: 38 Year
  Sex: Female

DRUGS (12)
  1. CIPRAMIL [CITALOPRAM HYDROCHLORIDE] [Interacting]
     Active Substance: CITALOPRAM HYDROCHLORIDE
     Dosage: 40 MG/DAY
     Route: 048
     Dates: start: 201001
  2. DOXEPIN [Concomitant]
     Active Substance: DOXEPIN
  3. ROHYPNOL [Concomitant]
     Active Substance: FLUNITRAZEPAM
     Dosage: 1 MG, 1X/DAY
     Route: 048
     Dates: start: 20100224, end: 20100313
  4. METFORMIN [Concomitant]
     Active Substance: METFORMIN HYDROCHLORIDE
     Route: 048
     Dates: start: 20100228
  5. DOMINAL [PROTHIPENDYL HYDROCHLORIDE] [Concomitant]
     Active Substance: PROTHIPENDYL HYDROCHLORIDE
     Indication: INSOMNIA
     Dosage: IRREGULARLY AS NEEDED
  6. LYRICA [Suspect]
     Active Substance: PREGABALIN
     Dosage: 375 MG, 1X/DAY
     Route: 048
     Dates: start: 201001
  7. FLUPENTIXOL [Interacting]
     Active Substance: FLUPENTIXOL
     Dosage: 10 MG, 1X/DAY
     Route: 048
     Dates: start: 20100223, end: 20100314
  8. ROHYPNOL [Concomitant]
     Active Substance: FLUNITRAZEPAM
     Dosage: 0.5 MG, 1X/DAY
     Route: 048
     Dates: start: 20100325
  9. HCT HEXAL [Concomitant]
     Active Substance: HYDROCHLOROTHIAZIDE
     Dosage: 12.5 MG/DAY
     Route: 048
     Dates: start: 20100225
  10. ATOSIL [PROMETHAZINE HYDROCHLORIDE] [Concomitant]
     Active Substance: PROMETHAZINE HYDROCHLORIDE
  11. TRUXAL [CHLORPROTHIXENE HYDROCHLORIDE] [Interacting]
     Active Substance: CHLORPROTHIXENE
     Dosage: 100 MG, 1X/DAY
     Route: 048
     Dates: start: 20100222, end: 20100316
  12. FLUPENTIXOL [Interacting]
     Active Substance: FLUPENTIXOL
     Dosage: 5 MG, 1X/DAY
     Route: 048
     Dates: start: 20100218, end: 20100222

REACTIONS (3)
  - Tremor [Recovered/Resolved]
  - Drug interaction [Recovered/Resolved]
  - Dyskinesia [Recovered/Resolved]

NARRATIVE: CASE EVENT DATE: 20100228
